FAERS Safety Report 15956349 (Version 1)
Quarter: 2019Q1

REPORT INFORMATION
  Report Type: Spontaneous
  Country: US (occurrence: US)
  Receive Date: 20190213
  Receipt Date: 20190213
  Transmission Date: 20190417
  Serious: No
  Sender: FDA-Public Use
  Company Number: US-GLAXOSMITHKLINE-US2019025029

PATIENT
  Sex: Female

DRUGS (4)
  1. BENLYSTA [Suspect]
     Active Substance: BELIMUMAB
     Indication: SJOGREN^S SYNDROME
  2. BENLYSTA [Suspect]
     Active Substance: BELIMUMAB
     Indication: CHRONIC FATIGUE SYNDROME
     Dosage: UNK
     Route: 065
  3. BENLYSTA [Suspect]
     Active Substance: BELIMUMAB
     Indication: RHEUMATOID ARTHRITIS
  4. BENLYSTA [Suspect]
     Active Substance: BELIMUMAB
     Indication: AUTOIMMUNE DISORDER

REACTIONS (2)
  - Product use in unapproved indication [Unknown]
  - Circumstance or information capable of leading to medication error [Unknown]
